FAERS Safety Report 5522229-1 (Version None)
Quarter: 2007Q4

REPORT INFORMATION
  Report Type: 
  Country: None (occurrence: None)
  Receive Date: 20071120
  Receipt Date: 20071114
  Transmission Date: 20080405
  Serious: Yes (Other)
  Sender: FDA-Public Use
  Company Number: US-JNJFOC-20071105419

PATIENT
  Age: 2 Year
  Sex: Male
  Weight: 16.78 kg

DRUGS (1)
  1. TYLENOL [Suspect]
     Indication: ACCIDENTAL EXPOSURE
     Dosage: APPROXIMATELY 30 ML

REACTIONS (2)
  - ACCIDENTAL DRUG INTAKE BY CHILD [None]
  - SOMNOLENCE [None]
